FAERS Safety Report 23051576 (Version 1)
Quarter: 2023Q4

REPORT INFORMATION
  Report Type: Spontaneous
  Country: US (occurrence: None)
  Receive Date: 20231010
  Receipt Date: 20231010
  Transmission Date: 20240109
  Serious: Yes (Hospitalization)
  Sender: FDA-Public Use
  Company Number: None

PATIENT
  Sex: Female
  Weight: 47.4 kg

DRUGS (1)
  1. TECHNETIUM TC-99M [Suspect]
     Active Substance: TECHNETIUM TC-99M
     Dosage: OTHER STRENGTH : 505 MCI;?
     Dates: end: 20230905

REACTIONS (8)
  - Haemoglobin decreased [None]
  - Pain [None]
  - Haemoptysis [None]
  - Post procedural haemorrhage [None]
  - Skin graft rejection [None]
  - Mouth haemorrhage [None]
  - Neck pain [None]
  - Pain in jaw [None]

NARRATIVE: CASE EVENT DATE: 20230916
